FAERS Safety Report 7743393-X (Version None)
Quarter: 2011Q3

REPORT INFORMATION
  Report Type: 
  Country: None (occurrence: None)
  Receive Date: 20110909
  Receipt Date: 20110909
  Transmission Date: 20111222
  Serious: Yes (Hospitalization)
  Sender: FDA-Public Use
  Company Number: None

PATIENT
  Sex: Female
  Weight: 62 kg

DRUGS (10)
  1. HERCEPTIN [Suspect]
     Dosage: 164 MG
     Dates: end: 20110728
  2. HYDROCHLOROTHIAZIDE [Concomitant]
  3. HYDROXYZINE [Concomitant]
  4. CYCLOPHOSPHAMIDE [Suspect]
     Dosage: 966 MG
     Dates: end: 20110907
  5. LOVASTATIN [Concomitant]
  6. NABUMETONE [Concomitant]
  7. NORTRYPTYLINE [Concomitant]
  8. DOXORUBICIN HYDROCHLORIDE [Suspect]
     Dosage: 97 MG
     Dates: end: 20110907
  9. CALCIUM CARBONATE [Concomitant]
  10. METFORMIN HCL [Concomitant]

REACTIONS (13)
  - CONDITION AGGRAVATED [None]
  - EJECTION FRACTION DECREASED [None]
  - ASTHMA [None]
  - ACUTE CORONARY SYNDROME [None]
  - BLOOD PRESSURE DIASTOLIC DECREASED [None]
  - TACHYCARDIA [None]
  - REFUSAL OF TREATMENT BY PATIENT [None]
  - INFUSION RELATED REACTION [None]
  - PULMONARY HYPERTENSION [None]
  - DRUG HYPERSENSITIVITY [None]
  - CARDIOMEGALY [None]
  - EMPHYSEMA [None]
  - HYPOTENSION [None]
